FAERS Safety Report 18795122 (Version 1)
Quarter: 2021Q1

REPORT INFORMATION
  Report Type: Spontaneous
  Country: US (occurrence: US)
  Receive Date: 20210127
  Receipt Date: 20210127
  Transmission Date: 20210419
  Serious: No
  Sender: FDA-Public Use
  Company Number: US-PFIZER INC-2021072654

PATIENT
  Age: 75 Year
  Sex: Male
  Weight: 106.14 kg

DRUGS (16)
  1. GABAPENTIN. [Suspect]
     Active Substance: GABAPENTIN
     Dosage: 60 MG
  2. AMIODARONE [Concomitant]
     Active Substance: AMIODARONE
     Indication: CARDIAC DISORDER
     Dosage: 20 MG, 2X/DAY
  3. POTASSIUM [Concomitant]
     Active Substance: POTASSIUM
     Dosage: 20 MG, 1X/DAY
  4. CRANBERRY EXTRACT [VACCINIUM MACROCARPON] [Concomitant]
     Indication: URINARY TRACT INFECTION
     Dosage: 350 MG, 1X/DAY
  5. PRAVASTATIN. [Concomitant]
     Active Substance: PRAVASTATIN
     Dosage: 80 MG, 1X/DAY
  6. ASPIRIN [ACETYLSALICYLIC ACID] [Concomitant]
     Active Substance: ASPIRIN
     Indication: HEART RATE INCREASED
     Dosage: 325 MG, 2X/DAY
  7. IRON [Concomitant]
     Active Substance: IRON
     Dosage: 350 MG, 1X/DAY
     Route: 048
  8. GLIBEZIDE [Concomitant]
     Indication: DIABETES MELLITUS
     Dosage: 5 MG, 1X/DAY, [ONCE DAILY IN THE MORNING]
  9. ESCITALOPRAM [Concomitant]
     Active Substance: ESCITALOPRAM OXALATE
     Indication: CARDIAC DISORDER
     Dosage: 10 MG, 1X/DAY
  10. TIZANIDINE. [Concomitant]
     Active Substance: TIZANIDINE
     Indication: SLEEP DISORDER
     Dosage: 4 MG, DAILY, [IN EVENING]
  11. GABAPENTIN. [Suspect]
     Active Substance: GABAPENTIN
     Indication: DIABETIC NEUROPATHY
     Dosage: 30 MG
  12. RAMIPRIL. [Concomitant]
     Active Substance: RAMIPRIL
     Indication: HYPERTENSION
     Dosage: 5 MG, 1X/DAY
  13. TIZANIDINE. [Concomitant]
     Active Substance: TIZANIDINE
     Indication: HYPOTONIA
  14. GABAPENTIN. [Suspect]
     Active Substance: GABAPENTIN
     Dosage: 90 MG, 3X/DAY
     Dates: end: 2020
  15. LASIX [Concomitant]
     Active Substance: FUROSEMIDE
     Indication: CARDIAC FAILURE CONGESTIVE
     Dosage: 40 MG, 1X/DAY
  16. COLCHICINE. [Concomitant]
     Active Substance: COLCHICINE
     Indication: CARDIAC DISORDER
     Dosage: 0.6 MG, 2X/DAY

REACTIONS (4)
  - Wrong strength [Unknown]
  - Off label use [Unknown]
  - Drug ineffective for unapproved indication [Unknown]
  - Limb discomfort [Unknown]

NARRATIVE: CASE EVENT DATE: 2020
